FAERS Safety Report 8255338-7 (Version None)
Quarter: 2012Q2

REPORT INFORMATION
  Report Type: 
  Country: None (occurrence: None)
  Receive Date: 20120403
  Receipt Date: 20120326
  Transmission Date: 20120825
  Serious: Yes (Hospitalization, Other)
  Sender: FDA-Public Use
  Company Number: US-UCBSA-054042

PATIENT
  Sex: Female

DRUGS (2)
  1. KEPPRA [Suspect]
  2. DEPAKOTE [Concomitant]

REACTIONS (1)
  - STATUS EPILEPTICUS [None]
